FAERS Safety Report 4718251-5 (Version None)
Quarter: 2005Q3

REPORT INFORMATION
  Report Type: 
  Country: None (occurrence: None)
  Receive Date: 20050718
  Receipt Date: 20050718
  Transmission Date: 20060218
  Serious: Yes (Death)
  Sender: FDA-Public Use
  Company Number: None

PATIENT
  Sex: Male
  Weight: 95 kg

DRUGS (2)
  1. THALIDOMIDE 50MG CELGENE [Suspect]
     Indication: MULTIPLE MYELOMA
     Dosage: 100 MG QD ORAL
     Route: 048
     Dates: start: 20050616, end: 20050714
  2. DEXAMETHASONE 20MG [Suspect]
     Indication: MULTIPLE MYELOMA
     Dosage: 20MG D1-4 Q21DAYS ORAL
     Route: 048
     Dates: start: 20050616, end: 20050714

REACTIONS (2)
  - MYOCARDIAL INFARCTION [None]
  - STEM CELL TRANSPLANT [None]
